FAERS Safety Report 24566150 (Version 1)
Quarter: 2024Q4

REPORT INFORMATION
  Report Type: Spontaneous
  Country: US (occurrence: None)
  Receive Date: 20241029
  Receipt Date: 20241029
  Transmission Date: 20250115
  Serious: Yes (Death, Life-Threatening, Hospitalization)
  Sender: Public
  Company Number: None

PATIENT
  Age: 45 Year
  Sex: Male
  Weight: 136.1 kg

DRUGS (11)
  1. OZEMPIC [Suspect]
     Active Substance: SEMAGLUTIDE
     Indication: Type 2 diabetes mellitus
     Dosage: OTHER FREQUENCY : WEEKLY;?
     Route: 058
     Dates: start: 20231201, end: 20240824
  2. CLOMID [Concomitant]
     Active Substance: CLOMIPHENE CITRATE
  3. CRESTOR [Concomitant]
     Active Substance: ROSUVASTATIN CALCIUM
  4. DICLOFENAC [Concomitant]
     Active Substance: DICLOFENAC
  5. FLUOXETINE [Concomitant]
     Active Substance: FLUOXETINE HYDROCHLORIDE
  6. LISINOPRIL [Concomitant]
     Active Substance: LISINOPRIL
  7. PARAFON FORTE [Concomitant]
     Active Substance: CHLORZOXAZONE
  8. PRILOSEC [Concomitant]
     Active Substance: OMEPRAZOLE MAGNESIUM
  9. PROPRANOLOL [Concomitant]
     Active Substance: PROPRANOLOL HYDROCHLORIDE
  10. VIAGRA [Concomitant]
     Active Substance: SILDENAFIL CITRATE
  11. VITAMINS [Concomitant]
     Active Substance: VITAMINS

REACTIONS (11)
  - Pancreatitis [None]
  - Grey Turner^s sign [None]
  - Pancreatitis necrotising [None]
  - Candida infection [None]
  - Fournier^s gangrene [None]
  - Enterococcal infection [None]
  - Respiratory distress [None]
  - Sepsis [None]
  - Portal vein thrombosis [None]
  - Aspiration [None]
  - Cardio-respiratory arrest [None]

NARRATIVE: CASE EVENT DATE: 20240824
